FAERS Safety Report 17952403 (Version 1)
Quarter: 2020Q2

REPORT INFORMATION
  Report Type: Spontaneous
  Country: US (occurrence: US)
  Receive Date: 20200626
  Receipt Date: 20200626
  Transmission Date: 20200714
  Serious: No
  Sender: FDA-Public Use
  Company Number: US-TAKEDA-2020TUS027914

PATIENT
  Age: 69 Year
  Sex: Female

DRUGS (1)
  1. NINLARO [Suspect]
     Active Substance: IXAZOMIB CITRATE
     Indication: PLASMA CELL MYELOMA IN REMISSION
     Dosage: 3 MILLIGRAM
     Route: 048
     Dates: start: 20191223

REACTIONS (2)
  - Dizziness [Unknown]
  - Nausea [Unknown]

NARRATIVE: CASE EVENT DATE: 20200605
